FAERS Safety Report 7886185 (Version 2)
Quarter: 2014Q1

REPORT INFORMATION
  Report Type: Spontaneous
  Country: US (occurrence: US)
  Receive Date: 20110405
  Receipt Date: 20140313
  Transmission Date: 20141002
  Serious: Yes (Other)
  Sender: FDA-Public Use
  Company Number: US-BAYER-2011-028493

PATIENT
  Age: 19 Year
  Sex: Female

DRUGS (10)
  1. YAZ [Suspect]
     Dosage: UNK
     Dates: start: 200401
  2. YASMIN [Suspect]
     Dosage: UNK
     Dates: start: 200401
  3. PROTONIX [Concomitant]
  4. ROCEPHIN [Concomitant]
  5. MACROBID [Concomitant]
  6. DEMEROL [Concomitant]
  7. PHENERGAN [Concomitant]
  8. COMPAZINE [Concomitant]
  9. ZOFRAN [Concomitant]
  10. DILAUDID [Concomitant]

REACTIONS (8)
  - Cholecystitis acute [None]
  - Cholecystectomy [None]
  - Injury [None]
  - Pain [None]
  - General physical health deterioration [None]
  - Anxiety [None]
  - Anhedonia [None]
  - Emotional distress [None]
